FAERS Safety Report 14197539 (Version 3)
Quarter: 2018Q1

REPORT INFORMATION
  Report Type: Spontaneous
  Country: JP (occurrence: JP)
  Receive Date: 20171116
  Receipt Date: 20180125
  Transmission Date: 20180508
  Serious: Yes (Other)
  Sender: FDA-Public Use
  Company Number: JP-AMGEN-JPNSP2017166041

PATIENT
  Age: 7 Decade
  Sex: Male

DRUGS (8)
  1. OXALIPLATIN. [Suspect]
     Active Substance: OXALIPLATIN
     Dosage: UNK
     Route: 041
     Dates: start: 201711
  2. FLUOROURACIL. [Suspect]
     Active Substance: FLUOROURACIL
     Indication: SMALL INTESTINE CARCINOMA
     Dosage: UNK
     Route: 041
     Dates: start: 201709, end: 201709
  3. CALCIUM LEVOFOLINATE [Suspect]
     Active Substance: LEVOLEUCOVORIN CALCIUM
     Indication: SMALL INTESTINE CARCINOMA
     Dosage: UNK
     Route: 041
     Dates: start: 201709, end: 201709
  4. CALCIUM LEVOFOLINATE [Suspect]
     Active Substance: LEVOLEUCOVORIN CALCIUM
     Dosage: UNK
     Route: 041
     Dates: start: 201711
  5. PANITUMUMAB [Suspect]
     Active Substance: PANITUMUMAB
     Dosage: 4 MG/KG, Q2WK
     Route: 041
     Dates: start: 201711
  6. OXALIPLATIN. [Suspect]
     Active Substance: OXALIPLATIN
     Indication: SMALL INTESTINE CARCINOMA
     Dosage: UNK
     Route: 041
     Dates: start: 201709, end: 201709
  7. PANITUMUMAB [Suspect]
     Active Substance: PANITUMUMAB
     Indication: SMALL INTESTINE CARCINOMA
     Dosage: 4 MG/KG, Q2WK
     Route: 041
     Dates: start: 201709, end: 201709
  8. FLUOROURACIL. [Suspect]
     Active Substance: FLUOROURACIL
     Dosage: UNK
     Route: 041
     Dates: start: 201711

REACTIONS (2)
  - Neutrophil count decreased [Recovering/Resolving]
  - Off label use [Unknown]

NARRATIVE: CASE EVENT DATE: 201709
